FAERS Safety Report 8820425 (Version 2)
Quarter: 2012Q4

REPORT INFORMATION
  Report Type: 
  Country: IT (occurrence: IT)
  Receive Date: 20121002
  Receipt Date: 20121010
  Transmission Date: 20130627
  Serious: Yes (Hospitalization)
  Sender: FDA-Public Use
  Company Number: IT-009507513-1209ITA011642

PATIENT
  Age: 68 Year
  Sex: Female

DRUGS (8)
  1. EFFICIB [Suspect]
     Indication: DIABETES MELLITUS
     Dosage: 500/1000 mg, qd
     Route: 048
     Dates: start: 20100101, end: 20120904
  2. SOLOSA [Concomitant]
     Indication: DIABETES MELLITUS
     Dosage: 2 mg, qd
     Route: 048
  3. CARDIOASPIRIN [Concomitant]
     Indication: PROPHYLAXIS
     Dosage: 100 mg, qd
     Route: 048
  4. LANSOX [Concomitant]
     Indication: DYSPEPSIA
     Dosage: 15 mg, qd
  5. ZYLORIC [Concomitant]
     Dosage: 150 mg, qd
     Route: 048
  6. LOBIVON [Concomitant]
     Indication: HYPERTENSION
     Dosage: 5 mg, UNK
     Route: 048
  7. UNIPRIL (RAMIPRIL) [Concomitant]
     Indication: HYPERTENSION
  8. UNIPRILDIUR [Concomitant]
     Indication: HYPERTENSION

REACTIONS (8)
  - Abdominal pain [Recovered/Resolved]
  - Blood bilirubin increased [Recovered/Resolved]
  - Jaundice [Recovered/Resolved]
  - Lipase increased [Recovered/Resolved]
  - Transaminases increased [Recovered/Resolved]
  - Blood chloride decreased [None]
  - Blood glucose increased [None]
  - Blood sodium decreased [None]
